FAERS Safety Report 9309930 (Version 1)
Quarter: 2013Q2

REPORT INFORMATION
  Report Type: Spontaneous
  Country: US (occurrence: US)
  Receive Date: 20130527
  Receipt Date: 20130527
  Transmission Date: 20140414
  Serious: Yes (Other)
  Sender: FDA-Public Use
  Company Number: US-AMGEN-USASP2013036785

PATIENT
  Age: 53 Year
  Sex: Female

DRUGS (1)
  1. ENBREL [Suspect]
     Indication: RHEUMATOID ARTHRITIS
     Dosage: 50 MG, QWK
     Dates: start: 20040515

REACTIONS (11)
  - Gallbladder disorder [Recovered/Resolved]
  - Foot deformity [Recovered/Resolved]
  - Pain [Not Recovered/Not Resolved]
  - Bile output increased [Not Recovered/Not Resolved]
  - Tendonitis [Recovering/Resolving]
  - Mobility decreased [Recovering/Resolving]
  - Arthropathy [Unknown]
  - Fatigue [Unknown]
  - Arthralgia [Not Recovered/Not Resolved]
  - Injection site pain [Recovered/Resolved]
  - Influenza [Recovered/Resolved]
